FAERS Safety Report 5371830-7 (Version None)
Quarter: 2007Q2

REPORT INFORMATION
  Report Type: 
  Country: None (occurrence: None)
  Receive Date: 20070627
  Receipt Date: 20070621
  Transmission Date: 20071010
  Serious: Yes (Hospitalization, Disabling, Other)
  Sender: FDA-Public Use
  Company Number: AU-AVENTIS-200715606GDDC

PATIENT
  Age: 54 Year
  Sex: Female

DRUGS (7)
  1. ARAVA [Suspect]
     Indication: RHEUMATOID ARTHRITIS
     Route: 048
     Dates: start: 20061101
  2. METHOTREXATE [Concomitant]
     Dosage: DOSE: UNK
  3. FOLIC ACID [Concomitant]
     Dosage: DOSE: UNK
  4. HYDROXYCHLOROQUINE SULFATE [Concomitant]
     Dosage: DOSE: UNK
  5. PREDNISONE TAB [Concomitant]
     Dosage: DOSE: UNK
  6. MOBIC [Concomitant]
     Dosage: DOSE: UNK
  7. FLUCONAZOLE [Concomitant]
     Dosage: DOSE: UNK

REACTIONS (1)
  - LUNG NEOPLASM MALIGNANT [None]
